FAERS Safety Report 11535874 (Version 1)
Quarter: 2015Q3

REPORT INFORMATION
  Report Type: Report from Study
  Country: DE (occurrence: DE)
  Receive Date: 20150922
  Receipt Date: 20150922
  Transmission Date: 20151125
  Serious: Yes (Hospitalization)
  Sender: FDA-Public Use
  Company Number: DE-DEP_02817_2015

PATIENT
  Age: 59 Year
  Sex: Female
  Weight: 100 kg

DRUGS (4)
  1. PROMETHAZIN (PROMETHAZINE HYDROCHLORIDE) [Suspect]
     Active Substance: PROMETHAZINE\PROMETHAZINE HYDROCHLORIDE
     Indication: PAIN
     Dosage: 240 MG, UNK
     Route: 048
     Dates: start: 201504
  2. PALEXIA [Suspect]
     Active Substance: TAPENTADOL HYDROCHLORIDE
     Indication: PAIN
     Dosage: 5 DF, UNK
     Route: 048
     Dates: start: 201504
  3. TRAMADOL 1 A PHARMA DROPS [Suspect]
     Active Substance: TRAMADOL
     Indication: PAIN
     Dosage: 700 MG, UNK
     Route: 048
     Dates: start: 201504
  4. AMITRIPTYLINE [Concomitant]
     Active Substance: AMITRIPTYLINE
     Indication: DEPRESSION

REACTIONS (3)
  - Suicide attempt [Unknown]
  - Somnolence [Unknown]
  - Depression [Unknown]

NARRATIVE: CASE EVENT DATE: 201504
